FAERS Safety Report 7817733-7 (Version None)
Quarter: 2011Q4

REPORT INFORMATION
  Report Type: 
  Country: None (occurrence: None)
  Receive Date: 20111017
  Receipt Date: 20111011
  Transmission Date: 20120403
  Serious: Yes (Other)
  Sender: FDA-Public Use
  Company Number: US-JNJFOC-20111004210

PATIENT
  Age: 51 Year
  Sex: Male

DRUGS (3)
  1. NICOTINE [Suspect]
     Indication: NICOTINE DEPENDENCE
     Route: 065
  2. NICOTINE [Suspect]
     Indication: NICOTINE DEPENDENCE
     Route: 065
  3. NICOTINE [Suspect]
     Indication: NICOTINE DEPENDENCE
     Route: 065

REACTIONS (4)
  - THERAPEUTIC RESPONSE UNEXPECTED [None]
  - DRUG ADMINISTRATION ERROR [None]
  - NICOTINE DEPENDENCE [None]
  - INTENTIONAL DRUG MISUSE [None]
